FAERS Safety Report 9767614 (Version 1)
Quarter: 2013Q4

REPORT INFORMATION
  Report Type: Spontaneous
  Country: US (occurrence: US)
  Receive Date: 20131217
  Receipt Date: 20131217
  Transmission Date: 20140711
  Serious: Yes (Hospitalization)
  Sender: FDA-Public Use
  Company Number: US-BAYER-2013-150410

PATIENT
  Age: 68 Year
  Sex: Female

DRUGS (10)
  1. CIPROFLOXACIN [Suspect]
     Indication: URINARY TRACT INFECTION
     Dosage: 500 MG, BID
     Dates: start: 2008
  2. CIPROFLOXACIN [Suspect]
     Indication: URINARY TRACT INFECTION
     Dosage: 500 MG, BID
     Dates: start: 2012
  3. ATORVASTATIN [Concomitant]
     Dosage: DAILY DOSE 40 MG
     Route: 048
  4. DILTIAZEM [Concomitant]
     Dosage: DAILY DOSE 360 MG
     Route: 048
  5. ESOMEPRAZOLE [Concomitant]
     Dosage: DAILY DOSE 40 MG
     Route: 048
  6. LOSARTAN [Concomitant]
     Dosage: DAILY DOSE 100 MG
     Route: 048
  7. HYDROCHLOROTHIAZIDE [Concomitant]
     Dosage: DAILY DOSE 12.5 MG
     Route: 048
  8. COUMADIN [Concomitant]
     Dosage: DAILY DOSE 4 MG
     Route: 048
  9. HYDRALAZINE [Concomitant]
     Dosage: 25 MG, TID
     Route: 048
  10. SOTALOL [Concomitant]
     Dosage: 80 MG, BID
     Route: 048

REACTIONS (2)
  - Inappropriate antidiuretic hormone secretion [Recovered/Resolved]
  - Inappropriate antidiuretic hormone secretion [Recovered/Resolved]
